FAERS Safety Report 12428004 (Version 1)
Quarter: 2016Q2

REPORT INFORMATION
  Report Type: Spontaneous
  Country: US (occurrence: US)
  Receive Date: 20160602
  Receipt Date: 20160602
  Transmission Date: 20160815
  Serious: No
  Sender: FDA-Public Use
  Company Number: US-ELI_LILLY_AND_COMPANY-US201605005254

PATIENT
  Sex: Female

DRUGS (1)
  1. ADCIRCA [Suspect]
     Active Substance: TADALAFIL
     Indication: PULMONARY HYPERTENSION
     Dosage: 40 MG, QD
     Route: 065
     Dates: start: 20160511

REACTIONS (7)
  - Sinus congestion [Unknown]
  - Dyspnoea [Unknown]
  - Chills [Unknown]
  - Dry mouth [Not Recovered/Not Resolved]
  - Feeling hot [Unknown]
  - Insomnia [Unknown]
  - Asthenia [Unknown]
